FAERS Safety Report 8793638 (Version 2)
Quarter: 2012Q4

REPORT INFORMATION
  Report Type: 
  Country: IT (occurrence: IT)
  Receive Date: 20120917
  Receipt Date: 20121029
  Transmission Date: 20130627
  Serious: Yes (Hospitalization, Other)
  Sender: FDA-Public Use
  Company Number: IT-GLAXOSMITHKLINE-B0830818A

PATIENT
  Age: 83 Year
  Sex: Male

DRUGS (6)
  1. PROPAFENONE [Suspect]
     Indication: ATRIAL FIBRILLATION
     Dosage: 325MG per day
     Route: 048
     Dates: start: 20120318, end: 20120818
  2. SERETIDE [Concomitant]
     Indication: CHRONIC OBSTRUCTIVE PULMONARY DISEASE
     Route: 055
     Dates: start: 20070101, end: 20120905
  3. CLEXANE [Concomitant]
     Indication: EMBOLISM VENOUS
     Dosage: 4000IU per day
  4. ESOMEPRAZOLE MAGNESIUM [Concomitant]
     Indication: GASTROOESOPHAGEAL REFLUX DISEASE
     Dates: start: 20070101, end: 20120905
  5. AMLODIPINE BESILATE [Concomitant]
     Indication: HYPERTENSION
     Dates: start: 20070101, end: 20120905
  6. TAMSULOSIN HYDROCHLORIDE [Concomitant]
     Indication: BENIGN PROSTATIC HYPERPLASIA

REACTIONS (6)
  - Hyponatraemia [Recovered/Resolved]
  - Haemoglobin decreased [Recovering/Resolving]
  - Haematocrit decreased [Recovered/Resolved]
  - Brain natriuretic peptide increased [Recovered/Resolved]
  - Dyspnoea [Unknown]
  - Atrial fibrillation [Unknown]
